FAERS Safety Report 4725087-8 (Version None)
Quarter: 2005Q3

REPORT INFORMATION
  Report Type: 
  Country: None (occurrence: None)
  Receive Date: 20050725
  Receipt Date: 20050718
  Transmission Date: 20060218
  Serious: Yes (Hospitalization, Disabling, Other)
  Sender: FDA-Public Use
  Company Number: 05-07-1243

PATIENT
  Age: 84 Year
  Sex: Female

DRUGS (5)
  1. TAMOXIFEN CITRATE [Suspect]
     Indication: BREAST CANCER
  2. FUROSEMIDE [Concomitant]
  3. AMIODARONE [Concomitant]
  4. ACETYLSALICYLATE LYSINE [Concomitant]
  5. NIFEDIPINE [Concomitant]

REACTIONS (1)
  - CUTANEOUS LUPUS ERYTHEMATOSUS [None]
